FAERS Safety Report 8816236 (Version 2)
Quarter: 2012Q4

REPORT INFORMATION
  Report Type: 
  Country: DE (occurrence: DE)
  Receive Date: 20120930
  Receipt Date: 20121130
  Transmission Date: 20130627
  Serious: Yes (Hospitalization)
  Sender: FDA-Public Use
  Company Number: DE-ELI_LILLY_AND_COMPANY-DE201209004753

PATIENT
  Age: 42 Year
  Sex: Female

DRUGS (3)
  1. CYMBALTA [Suspect]
     Indication: BACK PAIN
     Dosage: 60 mg, UNK
     Dates: start: 20120621
  2. CYMBALTA [Suspect]
     Dosage: 60 mg, bid
     Dates: end: 20120917
  3. KATADOLON [Concomitant]
     Indication: BACK PAIN
     Dosage: UNK, unknown

REACTIONS (6)
  - Cholestasis [Unknown]
  - Hepatitis [Unknown]
  - Cytomegalovirus test positive [Unknown]
  - Hepatitis A antibody positive [Unknown]
  - Hepatic steatosis [Unknown]
  - Platelet count decreased [Unknown]
